FAERS Safety Report 9657241 (Version 1)
Quarter: 2013Q4

REPORT INFORMATION
  Report Type: Spontaneous
  Country: GB (occurrence: GB)
  Receive Date: 20131030
  Receipt Date: 20131030
  Transmission Date: 20140711
  Serious: Yes (Other)
  Sender: FDA-Public Use
  Company Number: GB-ASTRAZENECA-2013SE78348

PATIENT
  Age: 41 Year
  Sex: Male

DRUGS (8)
  1. BRILIQUE [Suspect]
     Route: 048
     Dates: start: 20130929
  2. ASPIRIN [Concomitant]
     Route: 048
     Dates: start: 20130913
  3. ATORVASTATIN [Concomitant]
     Route: 048
     Dates: start: 20130913
  4. BISOPROLOL [Concomitant]
     Route: 048
     Dates: start: 20130913
  5. METFORMIN [Concomitant]
  6. NICOTINE [Concomitant]
     Route: 062
     Dates: start: 20130913
  7. OMEPRAZOLE [Concomitant]
     Route: 048
     Dates: start: 20130913
  8. RAMIPRIL [Concomitant]

REACTIONS (2)
  - Feeling abnormal [Not Recovered/Not Resolved]
  - Dyspnoea [Not Recovered/Not Resolved]
